FAERS Safety Report 7760637-9 (Version None)
Quarter: 2011Q3

REPORT INFORMATION
  Report Type: 
  Country: None (occurrence: None)
  Receive Date: 20110919
  Receipt Date: 20110913
  Transmission Date: 20111222
  Serious: Yes (Death)
  Sender: FDA-Public Use
  Company Number: GB-PFIZER INC-2011219671

PATIENT
  Age: 32 Year
  Sex: Male

DRUGS (2)
  1. MORPHINE SULFATE [Suspect]
     Indication: HEADACHE
     Dosage: 40 MG, 2X/DAY
     Route: 048
     Dates: start: 20060117
  2. MORPHINE SULFATE [Suspect]
     Dosage: 80 MG, DAILY
     Route: 048

REACTIONS (4)
  - EPILEPSY [None]
  - TOXICITY TO VARIOUS AGENTS [None]
  - ACCIDENTAL OVERDOSE [None]
  - RESPIRATORY ARREST [None]
